FAERS Safety Report 11380617 (Version 2)
Quarter: 2015Q4

REPORT INFORMATION
  Report Type: Spontaneous
  Country: US (occurrence: US)
  Receive Date: 20150814
  Receipt Date: 20151113
  Transmission Date: 20160304
  Serious: No
  Sender: FDA-Public Use
  Company Number: US-JNJFOC-20150719929

PATIENT
  Age: 53 Year
  Sex: Male
  Weight: 112 kg

DRUGS (2)
  1. LEVAQUIN [Suspect]
     Active Substance: LEVOFLOXACIN
     Indication: TENDON DISORDER
     Route: 065
     Dates: start: 2014
  2. CIPROFLOXACIN. [Suspect]
     Active Substance: CIPROFLOXACIN
     Indication: TENDON DISORDER
     Route: 065
     Dates: start: 2014

REACTIONS (5)
  - Cardiac disorder [Not Recovered/Not Resolved]
  - Peripheral swelling [Recovering/Resolving]
  - Hypersensitivity [Recovering/Resolving]
  - Feeling abnormal [Recovering/Resolving]
  - Tremor [Not Recovered/Not Resolved]

NARRATIVE: CASE EVENT DATE: 2014
